FAERS Safety Report 5951048-7 (Version None)
Quarter: 2008Q4

REPORT INFORMATION
  Report Type: 
  Country: None (occurrence: None)
  Receive Date: 20081110
  Receipt Date: 20081029
  Transmission Date: 20090506
  Serious: Yes (Life-Threatening)
  Sender: FDA-Public Use
  Company Number: 6046772

PATIENT
  Age: 76 Year
  Sex: Female

DRUGS (8)
  1. BISOPROLOL FUMARATE [Suspect]
     Indication: DRUG USE FOR UNKNOWN INDICATION
     Dosage: 1.25 MG (1.25 MG, 1 IN 1 D)
     Route: 048
     Dates: end: 20081006
  2. CORDARONE [Suspect]
     Indication: DRUG USE FOR UNKNOWN INDICATION
     Dosage: 1 DOSAGE FORM PER DAY, 5 DAYS TO 7 (200 MG, 1 IN 1 D)
     Route: 048
     Dates: end: 20081006
  3. COVERSYL (2 MG, TABLET) (PERINDOPRIL) [Suspect]
     Indication: DRUG USE FOR UNKNOWN INDICATION
     Dosage: 2 MG (2 MG, 1 IN 1 D)
     Route: 048
     Dates: end: 20081006
  4. LASIX [Suspect]
     Indication: DRUG USE FOR UNKNOWN INDICATION
     Dosage: 500 MG (250 MG, 2 IN 1 D)
     Route: 048
     Dates: end: 20081006
  5. IMOVANE (ZOPICLONE) [Concomitant]
  6. DEDROGYL (CALCIFEDIOL) [Concomitant]
  7. NOVORAPID (INSULIN ASPART) [Concomitant]
  8. LANTUS [Concomitant]

REACTIONS (11)
  - ANGIODERMATITIS [None]
  - BLOOD PRESSURE SYSTOLIC INCREASED [None]
  - BRADYARRHYTHMIA [None]
  - BRADYCARDIA [None]
  - BUNDLE BRANCH BLOCK LEFT [None]
  - CARDIAC FAILURE [None]
  - CONDITION AGGRAVATED [None]
  - GENERAL PHYSICAL CONDITION ABNORMAL [None]
  - HYPERKALAEMIA [None]
  - RENAL FAILURE CHRONIC [None]
  - VERTIGO [None]
